FAERS Safety Report 6654378-9 (Version None)
Quarter: 2010Q1

REPORT INFORMATION
  Report Type: 
  Country: None (occurrence: None)
  Receive Date: 20100326
  Receipt Date: 20100315
  Transmission Date: 20100710
  Serious: Yes (Hospitalization)
  Sender: FDA-Public Use
  Company Number: NL-PFIZER INC-2010032682

PATIENT
  Age: 63 Year
  Sex: Female
  Weight: 62 kg

DRUGS (10)
  1. ZYVOXID [Suspect]
     Indication: INTERVERTEBRAL DISCITIS
     Dosage: 600 MG, 2X/DAY
     Route: 048
     Dates: start: 20100219, end: 20100224
  2. METOPROLOL TARTRATE [Suspect]
     Indication: HYPERTENSION
     Dosage: 100 MG, UNK
     Dates: start: 20100215
  3. FRAGMIN [Concomitant]
     Dosage: 2500 UNK, 1X/DAY
     Dates: start: 20091226
  4. NEXIUM [Concomitant]
     Dosage: 40 MG, 1X/DAY
     Dates: start: 20091229, end: 20100224
  5. MOVICOLON [Concomitant]
     Dosage: UNK
     Dates: start: 20091230
  6. AMLODIPINE [Concomitant]
     Dosage: 10 MG, 1X/DAY
     Dates: start: 20100107
  7. IRBESARTAN [Concomitant]
     Dosage: 300 MG, 1X/DAY
     Dates: start: 20091226
  8. CREMOR ACO [Concomitant]
     Dosage: 30 G, 1X/DAY
     Dates: start: 20091230, end: 20100224
  9. DEXAMETASON [Concomitant]
     Dosage: 4 MG, 2X/DAY
     Dates: start: 20100218
  10. FUCIDINE CAP [Concomitant]
     Dosage: 500 MG, 3X/DAY
     Dates: start: 20100127, end: 20100224

REACTIONS (1)
  - DELIRIUM [None]
